FAERS Safety Report 9605065 (Version 1)
Quarter: 2013Q4

REPORT INFORMATION
  Report Type: Spontaneous
  Country: FR (occurrence: FR)
  Receive Date: 20131008
  Receipt Date: 20131008
  Transmission Date: 20140711
  Serious: Yes (Hospitalization, Other)
  Sender: FDA-Public Use
  Company Number: FR-PFIZER INC-2013286303

PATIENT
  Age: 81 Year
  Sex: Female

DRUGS (7)
  1. EUPANTOL [Suspect]
     Dosage: UNK
     Route: 048
     Dates: end: 20130826
  2. REMICADE [Suspect]
     Dosage: 5MG/KG EVERY 8 WEEKS
     Route: 065
     Dates: start: 20120707, end: 20130711
  3. SEROPLEX [Concomitant]
     Dosage: UNK
  4. MODOPAR [Concomitant]
     Dosage: UNK
  5. TIORFAN [Concomitant]
     Dosage: UNK
  6. DIFFU K [Concomitant]
     Dosage: UNK
  7. SMECTA [Concomitant]
     Dosage: UNK

REACTIONS (1)
  - Drug reaction with eosinophilia and systemic symptoms [Recovering/Resolving]
